FAERS Safety Report 6399872-3 (Version None)
Quarter: 2009Q4

REPORT INFORMATION
  Report Type: 
  Country: None (occurrence: None)
  Receive Date: 20091014
  Receipt Date: 20091005
  Transmission Date: 20100525
  Serious: Yes (Other)
  Sender: FDA-Public Use
  Company Number: TN-WATSON-2009-08282

PATIENT
  Age: 16 Year
  Sex: Male

DRUGS (2)
  1. KETOPROFEN EXTENDED RELEASE (WATSON LABORATORIES) [Suspect]
     Indication: CHEST PAIN
     Dosage: UNK
     Route: 048
  2. PARACETAMOL [Suspect]
     Indication: CHEST PAIN
     Dosage: UNK
     Route: 048

REACTIONS (4)
  - CONFUSIONAL STATE [None]
  - CONVULSION [None]
  - LOSS OF CONSCIOUSNESS [None]
  - SALIVARY HYPERSECRETION [None]
